FAERS Safety Report 19156940 (Version 2)
Quarter: 2021Q2

REPORT INFORMATION
  Report Type: Other
  Country: GB (occurrence: GB)
  Receive Date: 20210420
  Receipt Date: 20210619
  Transmission Date: 20210717
  Serious: Yes (Hospitalization, Other)
  Sender: FDA-Public Use
  Company Number: GB-ASPEN-GLO2021GB002688

PATIENT

DRUGS (19)
  1. DEXAMETHASONE. [Suspect]
     Active Substance: DEXAMETHASONE
     Indication: NAUSEA
     Dosage: 4 MG, BID
     Route: 048
     Dates: start: 20210220, end: 20210221
  2. PARACETAMOL [Concomitant]
     Active Substance: ACETAMINOPHEN
     Dosage: 50 MG, 4X/DAY (UP TO 1 G)
     Route: 048
  3. CAELYX [Suspect]
     Active Substance: DOXORUBICIN HYDROCHLORIDE
     Dosage: 4TH CYCLE; DOSAGE STRENGTH 50 MG/25 ML
     Route: 065
     Dates: start: 20210215
  4. CAELYX [Suspect]
     Active Substance: DOXORUBICIN HYDROCHLORIDE
     Dosage: 50 MG, CYCLIC (4TH CYCLE; OVER 1 HOUR), DOSAGE STRENGTH 50 MG/25 ML
     Route: 065
     Dates: start: 20210219, end: 2021
  5. GLUCOSE MONOHYDRATE [Suspect]
     Active Substance: DEXTROSE MONOHYDRATE
     Indication: MEDICATION DILUTION
     Dosage: FIRST 3 CYCLES;CAELYX+5%GLUCOSE
     Route: 065
  6. CAELYX [Suspect]
     Active Substance: DOXORUBICIN HYDROCHLORIDE
     Indication: OVARIAN CANCER
     Dosage: FIRST 3 CYCLES; CAELYX+5%GLUCOSE
     Route: 065
  7. CARBOPLATIN. [Suspect]
     Active Substance: CARBOPLATIN
     Indication: OVARIAN CANCER
     Dosage: FIRST 3 CYCLES;CARBOPLATIN+5%GLUCOSE
     Route: 065
  8. CARBOPLATIN. [Suspect]
     Active Substance: CARBOPLATIN
     Dosage: 4TH CYCLE
     Route: 065
     Dates: start: 20210215
  9. GLUCOSE MONOHYDRATE [Suspect]
     Active Substance: DEXTROSE MONOHYDRATE
     Dosage: 4TH CYCLE; CAELYX 50MG + 5%GLUCOSE 250 ML OVER 1 HOUR(250ML)
     Route: 065
     Dates: start: 20210219
  10. GLUCOSE MONOHYDRATE [Suspect]
     Active Substance: DEXTROSE MONOHYDRATE
     Dosage: 4TH CYCLE; CARBOPLATIN 450 MG + 5% GLUCOSE 545 ML OVER 1 HOUR (500 ML)
     Route: 065
     Dates: start: 20210219
  11. ONDANSETRON [Suspect]
     Active Substance: ONDANSETRON
     Indication: NAUSEA
     Dosage: 8 MG, BID
     Route: 048
     Dates: start: 20210220, end: 20210221
  12. METOCLOPRAMIDE. [Suspect]
     Active Substance: METOCLOPRAMIDE
     Indication: VOMITING
     Dosage: UNK
     Route: 065
  13. PARACETAMOL [Concomitant]
     Active Substance: ACETAMINOPHEN
     Indication: PAIN
     Dosage: 500 MG?1 G UPTO FOUR TIMES A DAY, AS REQUIRED; NOT KNOWN?LONG TERM (4 IN 1 D)
     Route: 048
  14. COVID?19 VACCINE [Concomitant]
     Indication: COVID-19 PROPHYLAXIS
     Dosage: 1 DOSE, STAT
     Route: 030
     Dates: start: 20210221
  15. METOCLOPRAMIDE. [Suspect]
     Active Substance: METOCLOPRAMIDE
     Indication: NAUSEA
     Dosage: UP TO 3 TIMES A DAY, AS REQUIRED
     Route: 048
     Dates: start: 20201113
  16. ONDANSETRON [Suspect]
     Active Substance: ONDANSETRON
     Indication: VOMITING
     Dosage: UNK
     Route: 065
  17. GLUCOSE MONOHYDRATE [Suspect]
     Active Substance: DEXTROSE MONOHYDRATE
     Dosage: FIRST 3 CYCLES; CARBOPLATIN + 5% GLUCOSE
     Route: 065
  18. DEXAMETHASONE. [Suspect]
     Active Substance: DEXAMETHASONE
     Indication: VOMITING
     Dosage: UNK
     Route: 065
  19. CARBOPLATIN. [Suspect]
     Active Substance: CARBOPLATIN
     Dosage: 4TH CYCLE, CARBOPLATIN 450 MG + 5% GLUCOSE 545 ML GIVEN OVER 1 HOUR (450 MG)
     Route: 065
     Dates: start: 20210219, end: 2021

REACTIONS (6)
  - Neutropenic sepsis [Recovering/Resolving]
  - Folate deficiency [Unknown]
  - Mouth ulceration [Unknown]
  - Vitamin B12 deficiency [Unknown]
  - Pancytopenia [Recovering/Resolving]
  - Myelosuppression [Unknown]

NARRATIVE: CASE EVENT DATE: 202103
